FAERS Safety Report 18004259 (Version 1)
Quarter: 2020Q3

REPORT INFORMATION
  Report Type: Spontaneous
  Country: US (occurrence: US)
  Receive Date: 20200709
  Receipt Date: 20200709
  Transmission Date: 20201103
  Serious: No
  Sender: FDA-Public Use
  Company Number: US-ASTELLAS-2020US015978

PATIENT
  Sex: Female

DRUGS (2)
  1. TROSPIUM [Concomitant]
     Active Substance: TROSPIUM
     Indication: INCONTINENCE
     Dosage: UNK UNK, (1 IN THE MORNING AND 1 AT NIGHT) TWICE DAILY
     Route: 065
     Dates: start: 202004
  2. MYRBETRIQ [Suspect]
     Active Substance: MIRABEGRON
     Indication: INCONTINENCE
     Route: 065
     Dates: start: 202004

REACTIONS (4)
  - Pain [Unknown]
  - Blood pressure abnormal [Unknown]
  - Peripheral swelling [Unknown]
  - Joint swelling [Unknown]

NARRATIVE: CASE EVENT DATE: 202005
